FAERS Safety Report 17018105 (Version 15)
Quarter: 2020Q2

REPORT INFORMATION
  Report Type: Report from Study
  Country: US (occurrence: US)
  Receive Date: 20191111
  Receipt Date: 20200521
  Transmission Date: 20200713
  Serious: Yes (Hospitalization, Other)
  Sender: FDA-Public Use
  Company Number: US-ACTELION-A-NJ2018-177718

PATIENT
  Age: 47 Year
  Sex: Female
  Weight: 123.81 kg

DRUGS (14)
  1. COLCHICINE. [Suspect]
     Active Substance: COLCHICINE
     Indication: GOUT
     Route: 065
  2. REMODULIN [Concomitant]
     Active Substance: TREPROSTINIL
  3. AMLODIPINE [Concomitant]
     Active Substance: AMLODIPINE BESYLATE
  4. MYCOPHENOLATE [Concomitant]
     Active Substance: MYCOPHENOLIC ACID
  5. SILDENAFIL. [Concomitant]
     Active Substance: SILDENAFIL
     Dosage: UNK
     Dates: end: 20181006
  6. TORSEMIDE. [Concomitant]
     Active Substance: TORSEMIDE
  7. OPSUMIT [Suspect]
     Active Substance: MACITENTAN
     Indication: PULMONARY ARTERIAL HYPERTENSION
     Dosage: 10 MG, QD
     Route: 048
     Dates: start: 20180620
  8. OXYGEN. [Concomitant]
     Active Substance: OXYGEN
  9. ADEMPAS [Suspect]
     Active Substance: RIOCIGUAT
     Indication: PRODUCT USED FOR UNKNOWN INDICATION
     Route: 065
  10. HYDROXYCHLOROQUINE [Concomitant]
     Active Substance: HYDROXYCHLOROQUINE
  11. FUROSEMIDE. [Concomitant]
     Active Substance: FUROSEMIDE
  12. POTASSIUM CHLORIDE. [Concomitant]
     Active Substance: POTASSIUM CHLORIDE
  13. LOSARTAN. [Concomitant]
     Active Substance: LOSARTAN
  14. ORENITRAM [Concomitant]
     Active Substance: TREPROSTINIL
     Dosage: 3 MG, TID
     Route: 048

REACTIONS (65)
  - Blood creatinine increased [Unknown]
  - Cough [Recovering/Resolving]
  - Diarrhoea [Unknown]
  - Rash [Unknown]
  - Anxiety [Unknown]
  - Rhinorrhoea [Not Recovered/Not Resolved]
  - Right ventricular failure [Unknown]
  - Peripheral swelling [Unknown]
  - Atrial flutter [Unknown]
  - Hypotension [Unknown]
  - Troponin increased [Recovering/Resolving]
  - Clostridium difficile infection [Unknown]
  - Gastrointestinal disorder [Unknown]
  - Respiratory tract infection [Unknown]
  - Hypervolaemia [Unknown]
  - Catheter site haemorrhage [Unknown]
  - Pulmonary hypertension [Not Recovered/Not Resolved]
  - Gout [Recovered/Resolved]
  - Haematochezia [Unknown]
  - Fatigue [Recovering/Resolving]
  - Palpitations [Unknown]
  - Musculoskeletal pain [Unknown]
  - Presyncope [Unknown]
  - Dyspepsia [Unknown]
  - Cardiac failure [Not Recovered/Not Resolved]
  - Oedema peripheral [Recovering/Resolving]
  - Nausea [Unknown]
  - Supraventricular tachycardia [Unknown]
  - Asthenia [Recovered/Resolved]
  - Malaise [Recovering/Resolving]
  - Atrial fibrillation [Unknown]
  - Arthralgia [Unknown]
  - Condition aggravated [Not Recovered/Not Resolved]
  - Feeling abnormal [Unknown]
  - Blood pressure systolic decreased [Unknown]
  - Nasopharyngitis [Not Recovered/Not Resolved]
  - Vision blurred [Unknown]
  - Nervousness [Unknown]
  - Rheumatoid arthritis [Unknown]
  - Pain [Unknown]
  - Chest pain [Unknown]
  - Night sweats [Unknown]
  - Jugular vein distension [Unknown]
  - Dyspnoea exertional [Unknown]
  - Application site pruritus [Unknown]
  - Headache [Unknown]
  - Cardiac disorder [Unknown]
  - Chest discomfort [Unknown]
  - Vomiting [Recovering/Resolving]
  - Dyspnoea [Unknown]
  - Haemoptysis [Unknown]
  - Epistaxis [Unknown]
  - Dehydration [Recovered/Resolved]
  - Hyperhidrosis [Recovered/Resolved]
  - Dizziness [Unknown]
  - Brain natriuretic peptide increased [Unknown]
  - Tachycardia [Unknown]
  - Epigastric discomfort [Recovering/Resolving]
  - Cardiac failure congestive [Recovering/Resolving]
  - Weight increased [Unknown]
  - Cardiac ablation [Unknown]
  - Pain in extremity [Recovered/Resolved]
  - Atrial tachycardia [Recovered/Resolved]
  - Rales [Unknown]
  - Catheter site pruritus [Unknown]

NARRATIVE: CASE EVENT DATE: 201808
